FAERS Safety Report 15563398 (Version 1)
Quarter: 2018Q4

REPORT INFORMATION
  Report Type: Spontaneous
  Country: FR (occurrence: FR)
  Receive Date: 20181029
  Receipt Date: 20181029
  Transmission Date: 20190205
  Serious: Yes (Hospitalization)
  Sender: FDA-Public Use
  Company Number: FR-JNJFOC-20181038677

PATIENT
  Age: 55 Year
  Sex: Female

DRUGS (8)
  1. OXYCODONE [Concomitant]
     Active Substance: OXYCODONE
     Route: 048
  2. DAFALGAN [Concomitant]
     Active Substance: ACETAMINOPHEN
     Route: 048
  3. TRANSIPEG [Concomitant]
     Route: 048
  4. ZYMADUO [Concomitant]
     Route: 048
  5. XARELTO [Suspect]
     Active Substance: RIVAROXABAN
     Indication: PULMONARY EMBOLISM
     Route: 048
     Dates: start: 20180828, end: 20180829
  6. PIPOTIAZINE [Concomitant]
     Active Substance: PIPOTIAZINE
     Route: 048
  7. TERCIAN [Concomitant]
     Active Substance: CYAMEMAZINE
     Route: 048
  8. THERALENE [Concomitant]
     Active Substance: TRIMEPRAZINE
     Route: 048

REACTIONS (1)
  - Rash [Recovered/Resolved]

NARRATIVE: CASE EVENT DATE: 20180829
